FAERS Safety Report 6223241-X (Version None)
Quarter: 2009Q2

REPORT INFORMATION
  Report Type: 
  Country: None (occurrence: None)
  Receive Date: 20090611
  Receipt Date: 20090602
  Transmission Date: 20091009
  Serious: Yes (Hospitalization)
  Sender: FDA-Public Use
  Company Number: ZA-AVENTIS-200915616GDDC

PATIENT
  Sex: Male
  Weight: 2.6 kg

DRUGS (2)
  1. LANTUS [Suspect]
     Indication: DIABETIC RELATIVE
     Route: 064
     Dates: start: 20081015, end: 20081029
  2. APIDRA [Suspect]
     Indication: DIABETIC RELATIVE
     Route: 058
     Dates: start: 20081015, end: 20081029

REACTIONS (2)
  - DRUG EXPOSURE DURING PREGNANCY [None]
  - PREMATURE BABY [None]
